FAERS Safety Report 5393059-9 (Version None)
Quarter: 2007Q3

REPORT INFORMATION
  Report Type: 
  Country: None (occurrence: None)
  Receive Date: 20070719
  Receipt Date: 20070704
  Transmission Date: 20080115
  Serious: Yes (Other)
  Sender: FDA-Public Use
  Company Number: 2007326783

PATIENT
  Sex: Male

DRUGS (1)
  1. NICORETTE [Suspect]
     Dosage: 15MG EVERY 16 HOURS (15 MG), TRANSDERMAL
     Route: 062
     Dates: start: 20070604

REACTIONS (1)
  - CEREBRAL INFARCTION [None]
